FAERS Safety Report 20899932 (Version 1)
Quarter: 2022Q2

REPORT INFORMATION
  Report Type: Spontaneous
  Country: CH (occurrence: CH)
  Receive Date: 20220601
  Receipt Date: 20220601
  Transmission Date: 20220721
  Serious: No
  Sender: FDA-Public Use
  Company Number: CH-ALKEM LABORATORIES LIMITED-CH-ALKEM-2022-01107

PATIENT
  Age: 55 Year
  Sex: Female

DRUGS (3)
  1. NIMODIPINE [Suspect]
     Active Substance: NIMODIPINE
     Indication: Product used for unknown indication
     Dosage: 30 MILLIGRAM, TID
     Route: 048
  2. NIMODIPINE [Suspect]
     Active Substance: NIMODIPINE
     Dosage: 60 MILLIGRAM, QID
     Route: 048
  3. TUAMINOHEPTANE [Concomitant]
     Active Substance: TUAMINOHEPTANE
     Indication: Vasoconstriction
     Dosage: UNK
     Route: 045

REACTIONS (1)
  - Drug ineffective [Unknown]
